FAERS Safety Report 9247656 (Version 1)
Quarter: 2013Q1

REPORT INFORMATION
  Report Type: Spontaneous
  Country: US (occurrence: None)
  Receive Date: 20130305
  Receipt Date: 20130305
  Transmission Date: 20140127
  Serious: Yes (Other)
  Sender: FDA-Public Use
  Company Number: 163-21880-12062317

PATIENT
  Age: 69 Year
  Sex: Female
  Weight: 131.09 kg

DRUGS (3)
  1. REVLIMID [Suspect]
     Indication: PLASMA CELL MYELOMA
     Dosage: 21 IN 28 D
     Route: 048
     Dates: start: 20120204, end: 20120723
  2. BABY ASPIRIN (ACETYLSALICYLIC ACID) [Concomitant]
  3. LASIX (FUROSEMIDE) [Concomitant]

REACTIONS (2)
  - White blood cell count decreased [None]
  - Full blood count decreased [None]
